FAERS Safety Report 5427241-9 (Version None)
Quarter: 2007Q3

REPORT INFORMATION
  Report Type: 
  Country: None (occurrence: None)
  Receive Date: 20070828
  Receipt Date: 20070823
  Transmission Date: 20080115
  Serious: Yes (Hospitalization)
  Sender: FDA-Public Use
  Company Number: JP-BAYER-200710488BYL

PATIENT
  Age: 74 Year
  Sex: Male
  Weight: 53 kg

DRUGS (10)
  1. ASPIRIN [Suspect]
     Indication: CORONARY ANGIOPLASTY
     Dosage: TOTAL DAILY DOSE: 100 MG  UNIT DOSE: 100 MG
     Route: 048
     Dates: start: 20070518, end: 20070611
  2. ASPIRIN [Suspect]
     Dosage: TOTAL DAILY DOSE: 100 MG  UNIT DOSE: 100 MG
     Route: 048
     Dates: start: 20070705
  3. TICLOPIDINE HCL [Suspect]
     Indication: CORONARY ANGIOPLASTY
     Route: 048
     Dates: start: 20070518, end: 20070611
  4. LOSARTAN POTASSIUM [Suspect]
     Indication: PROPHYLAXIS
     Route: 048
     Dates: start: 20070518, end: 20070611
  5. PRAVASTATIN [Suspect]
     Indication: HYPERCHOLESTEROLAEMIA
     Route: 048
     Dates: start: 20070518, end: 20070611
  6. ARTIST [Suspect]
     Indication: ISCHAEMIC HEART DISEASE PROPHYLAXIS
     Route: 048
     Dates: start: 20070518, end: 20070611
  7. BASEN [Suspect]
     Indication: DIABETES MELLITUS
     Route: 048
     Dates: start: 20070518, end: 20070611
  8. LANSOPRAZOLE [Concomitant]
     Indication: PROPHYLAXIS AGAINST GASTROINTESTINAL ULCER
     Dosage: TOTAL DAILY DOSE: 30 MG
     Route: 048
     Dates: start: 20070518
  9. PLETAL [Concomitant]
     Indication: ANTIPLATELET THERAPY
     Route: 048
     Dates: start: 20070611
  10. ANPLAG [Concomitant]
     Indication: ANTIPLATELET THERAPY
     Route: 048
     Dates: start: 20070611

REACTIONS (5)
  - BLOOD ALKALINE PHOSPHATASE INCREASED [None]
  - CHOLESTASIS [None]
  - CHROMATURIA [None]
  - FAECES PALE [None]
  - HYPERBILIRUBINAEMIA [None]
